FAERS Safety Report 7887957-1 (Version None)
Quarter: 2011Q4

REPORT INFORMATION
  Report Type: 
  Country: None (occurrence: None)
  Receive Date: 20111103
  Receipt Date: 20111021
  Transmission Date: 20120403
  Serious: Yes (Hospitalization)
  Sender: FDA-Public Use
  Company Number: US-ELI_LILLY_AND_COMPANY-US201105006487

PATIENT
  Sex: Female

DRUGS (12)
  1. FORTEO [Suspect]
     Dosage: 20 UG, QD
  2. VITAMIN E [Concomitant]
  3. IRON [Concomitant]
  4. LOVAZA [Concomitant]
  5. MULTI-VITAMIN [Concomitant]
     Dosage: UNK, QD
  6. TRAMADOL HCL [Concomitant]
  7. QUESTRAN [Concomitant]
  8. PREDNISONE [Concomitant]
  9. ALPRAZOLAM [Concomitant]
  10. FORTEO [Suspect]
     Indication: OSTEOPOROSIS
     Dosage: 20 UG, QD
     Dates: start: 20100618
  11. DIOVAN HCT [Concomitant]
  12. CALTRATE + D                       /01204201/ [Concomitant]

REACTIONS (4)
  - HIP FRACTURE [None]
  - INJECTION SITE PAIN [None]
  - FALL [None]
  - BALANCE DISORDER [None]
